FAERS Safety Report 9210235 (Version 1)
Quarter: 2013Q2

REPORT INFORMATION
  Report Type: Report from Study
  Country: BR (occurrence: BR)
  Receive Date: 20130404
  Receipt Date: 20130404
  Transmission Date: 20140414
  Serious: Yes (Other)
  Sender: FDA-Public Use
  Company Number: BR-ROCHE-706610

PATIENT
  Age: 57 Year
  Sex: Female
  Weight: 60 kg

DRUGS (13)
  1. MABTHERA [Suspect]
     Indication: SJOGREN^S SYNDROME
     Route: 042
     Dates: start: 20100501, end: 20101126
  2. CALCIFEROL [Suspect]
     Indication: PRODUCT USED FOR UNKNOWN INDICATION
     Route: 065
  3. METHOTREXATE [Suspect]
     Indication: PRODUCT USED FOR UNKNOWN INDICATION
     Route: 065
  4. SONALGIN [Concomitant]
     Route: 065
  5. ALPRAZOLAM [Concomitant]
     Indication: SEDATIVE THERAPY
     Route: 065
  6. ITRACONAZOL [Concomitant]
     Route: 065
  7. ATENOLOL [Concomitant]
     Indication: HYPERTENSION
     Route: 065
  8. LAXATIVES AND STOOL SOFTENERS [Concomitant]
  9. LINSEED [Concomitant]
     Dosage: REPORTED AS LINSEED OIL
     Route: 065
  10. POLARMINE [Concomitant]
  11. AMBROXOL [Concomitant]
  12. FLUCONAZOLE [Concomitant]
  13. PARACETAMOL [Concomitant]
     Indication: PREMEDICATION
     Route: 065
     Dates: start: 20101128, end: 20101128

REACTIONS (25)
  - Suicidal ideation [Recovered/Resolved]
  - Blood pressure increased [Recovered/Resolved]
  - Osteoporosis [Not Recovered/Not Resolved]
  - Pneumonia [Recovered/Resolved]
  - Cholelithiasis [Recovered/Resolved]
  - Weight increased [Recovering/Resolving]
  - Tachycardia [Recovered/Resolved]
  - Malaise [Recovered/Resolved]
  - Influenza [Not Recovered/Not Resolved]
  - Cough [Recovered/Resolved]
  - Pain [Not Recovered/Not Resolved]
  - Laziness [Not Recovered/Not Resolved]
  - Alopecia [Not Recovered/Not Resolved]
  - Weight increased [Recovered/Resolved]
  - Sinusitis [Recovered/Resolved]
  - Nasopharyngitis [Recovered/Resolved]
  - Alopecia [Not Recovered/Not Resolved]
  - Urticaria [Recovered/Resolved]
  - Pain [Recovered/Resolved]
  - Petechiae [Not Recovered/Not Resolved]
  - Feeling abnormal [Recovered/Resolved]
  - Psychiatric symptom [Recovered/Resolved]
  - Hepatic steatosis [Not Recovered/Not Resolved]
  - Abdominal pain upper [Not Recovered/Not Resolved]
  - Petechiae [Not Recovered/Not Resolved]
